FAERS Safety Report 7400046-5 (Version None)
Quarter: 2011Q2

REPORT INFORMATION
  Report Type: 
  Country: None (occurrence: None)
  Receive Date: 20110407
  Receipt Date: 20110405
  Transmission Date: 20111010
  Serious: Yes (Hospitalization, Other)
  Sender: FDA-Public Use
  Company Number: JP-ABBOTT-11P-087-0709162-00

PATIENT
  Sex: Male

DRUGS (10)
  1. HUMIRA [Suspect]
     Indication: CROHN'S DISEASE
     Route: 058
     Dates: start: 20101027, end: 20101027
  2. PREDNISOLONE [Suspect]
     Indication: CROHN'S DISEASE
     Dosage: DAILY DOSE: 15MG
     Route: 048
     Dates: start: 20101028, end: 20101110
  3. HUMIRA [Suspect]
     Route: 058
     Dates: start: 20101110, end: 20101110
  4. PREDNISOLONE [Suspect]
     Dosage: DAILY DOSE: 5MG
     Route: 048
     Dates: start: 20101118, end: 20101125
  5. LANSOPRAZOLE [Concomitant]
     Indication: ADVERSE EVENT
  6. PREDNISOLONE [Suspect]
     Dosage: DAILY DOSE: 10MG
     Route: 048
     Dates: start: 20101110, end: 20101117
  7. FLAVIN ADENINE DINUCLEOTIDE SODIUM [Concomitant]
     Indication: STOMATITIS
     Route: 048
     Dates: start: 20101020, end: 20101102
  8. LANSOPRAZOLE [Concomitant]
     Indication: PROPHYLAXIS
     Dosage: DAILY DOSE: 30MG
     Route: 048
     Dates: end: 20101125
  9. HUMIRA [Suspect]
     Route: 058
     Dates: start: 20101124, end: 20110219
  10. BEPOTASTINE BESILATE [Concomitant]
     Indication: RHINITIS ALLERGIC
     Dates: start: 20110122, end: 20110219

REACTIONS (8)
  - PAIN [None]
  - STITCH ABSCESS [None]
  - WOUND SECRETION [None]
  - INDURATION [None]
  - GASTROINTESTINAL ANASTOMOTIC LEAK [None]
  - POSTOPERATIVE WOUND INFECTION [None]
  - ANAL STENOSIS [None]
  - WOUND DEHISCENCE [None]
